FAERS Safety Report 12967734 (Version 1)
Quarter: 2016Q4

REPORT INFORMATION
  Report Type: Spontaneous
  Country: US (occurrence: US)
  Receive Date: 20161123
  Receipt Date: 20161123
  Transmission Date: 20170207
  Serious: No
  Sender: FDA-Public Use
  Company Number: US-TEVA-655952USA

PATIENT
  Age: 6 Year
  Sex: Female
  Weight: 27.24 kg

DRUGS (1)
  1. MUPIROCIN. [Suspect]
     Active Substance: MUPIROCIN
     Indication: ECZEMA INFECTED
     Dosage: 2%
     Route: 061

REACTIONS (5)
  - Erythema [Unknown]
  - Swelling face [Unknown]
  - Eczema [Unknown]
  - Eye swelling [Recovered/Resolved]
  - Rash [Unknown]

NARRATIVE: CASE EVENT DATE: 20160330
